FAERS Safety Report 4852804-9 (Version None)
Quarter: 2005Q4

REPORT INFORMATION
  Report Type: 
  Country: None (occurrence: None)
  Receive Date: 20051212
  Receipt Date: 20051212
  Transmission Date: 20060501
  Serious: Yes (Life-Threatening)
  Sender: FDA-Public Use
  Company Number: None

PATIENT
  Age: 40 Year
  Sex: Male

DRUGS (3)
  1. AZITHROMYCIN [Suspect]
     Indication: PNEUMONIA
     Dosage: 500MG  DAILY PO    2 DOSES
     Route: 048
  2. AMIODARONE [Suspect]
     Indication: ATRIAL FIBRILLATION
     Dosage: 150MG X2 IV     2 DOSES
     Route: 042
  3. AMIODARONE [Suspect]
     Indication: ATRIAL FLUTTER
     Dosage: 150MG X2 IV     2 DOSES
     Route: 042

REACTIONS (9)
  - ATRIAL FLUTTER [None]
  - ATRIAL TACHYCARDIA [None]
  - CARDIO-RESPIRATORY ARREST [None]
  - ELECTROCARDIOGRAM QT PROLONGED [None]
  - HYPERTHYROIDISM [None]
  - SINUS TACHYCARDIA [None]
  - TORSADE DE POINTES [None]
  - VENTRICULAR FLUTTER [None]
  - VENTRICULAR TACHYCARDIA [None]
